FAERS Safety Report 5200102-6 (Version None)
Quarter: 2007Q1

REPORT INFORMATION
  Report Type: 
  Country: None (occurrence: None)
  Receive Date: 20070105
  Receipt Date: 20061227
  Transmission Date: 20070707
  Serious: Yes (Hospitalization)
  Sender: FDA-Public Use
  Company Number: J200605353

PATIENT
  Age: 24 Year
  Sex: Female

DRUGS (4)
  1. SAWACILLIN [Suspect]
     Indication: DENTAL TREATMENT
     Dosage: 750MG PER DAY
     Route: 048
     Dates: start: 20061124, end: 20061127
  2. LOXONIN [Suspect]
     Indication: DENTAL TREATMENT
     Route: 048
     Dates: start: 20061124, end: 20061127
  3. MARZULENE S [Concomitant]
     Indication: DENTAL TREATMENT
     Route: 048
     Dates: start: 20061124
  4. PREDONINE [Concomitant]
     Indication: DENTAL TREATMENT
     Route: 048
     Dates: start: 20061124

REACTIONS (10)
  - ALANINE AMINOTRANSFERASE INCREASED [None]
  - ASPARTATE AMINOTRANSFERASE INCREASED [None]
  - BLOOD LACTATE DEHYDROGENASE INCREASED [None]
  - DIARRHOEA [None]
  - GAMMA-GLUTAMYLTRANSFERASE INCREASED [None]
  - HEPATIC ENZYME INCREASED [None]
  - HEPATIC FUNCTION ABNORMAL [None]
  - LYMPHOCYTE STIMULATION TEST POSITIVE [None]
  - NAUSEA [None]
  - PYREXIA [None]
